FAERS Safety Report 16194249 (Version 3)
Quarter: 2020Q2

REPORT INFORMATION
  Report Type: Spontaneous
  Country: US (occurrence: US)
  Receive Date: 20190414
  Receipt Date: 20200602
  Transmission Date: 20200713
  Serious: Yes (Hospitalization)
  Sender: FDA-Public Use
  Company Number: US-JNJFOC-20190401684

PATIENT
  Age: 76 Year
  Sex: Male
  Weight: 100.79 kg

DRUGS (6)
  1. XARELTO [Suspect]
     Active Substance: RIVAROXABAN
     Indication: CEREBROVASCULAR ACCIDENT PROPHYLAXIS
     Route: 048
     Dates: start: 20160408, end: 20171007
  2. XARELTO [Suspect]
     Active Substance: RIVAROXABAN
     Indication: ATRIAL FIBRILLATION
  3. ASPRIN [Suspect]
     Active Substance: ASPIRIN
     Indication: STENT PLACEMENT
     Route: 048
     Dates: start: 20170918, end: 20171007
  4. ASPRIN [Suspect]
     Active Substance: ASPIRIN
     Route: 048
  5. XARELTO [Suspect]
     Active Substance: RIVAROXABAN
     Indication: THROMBOSIS PROPHYLAXIS
     Route: 048
     Dates: start: 20171007, end: 20171024
  6. PLAVIX [Suspect]
     Active Substance: CLOPIDOGREL BISULFATE
     Indication: STENT PLACEMENT
     Route: 048
     Dates: start: 20170918

REACTIONS (1)
  - Haemorrhagic arteriovenous malformation [Recovering/Resolving]

NARRATIVE: CASE EVENT DATE: 201709
